FAERS Safety Report 6132159-2 (Version None)
Quarter: 2009Q1

REPORT INFORMATION
  Report Type: 
  Country: None (occurrence: None)
  Receive Date: 20090325
  Receipt Date: 20090306
  Transmission Date: 20090719
  Serious: Yes (Other)
  Sender: FDA-Public Use
  Company Number: B0564689A

PATIENT
  Age: 5 Year
  Sex: Male

DRUGS (7)
  1. THIOGUANINE [Suspect]
  2. BUSULFAN [Suspect]
  3. DEXAMETHASONE TAB [Suspect]
  4. CYTARABINE [Suspect]
  5. DAUNORUBICIN HCL [Suspect]
  6. ETOPOSIDE [Suspect]
     Dosage: 1600MGM2 PER DAY
  7. CYCLOPHOSPHAMIDE [Suspect]
     Dosage: 120MGK PER DAY

REACTIONS (3)
  - MASS [None]
  - MUCOEPIDERMOID CARCINOMA [None]
  - SKIN LESION [None]
